FAERS Safety Report 6382435-3 (Version None)
Quarter: 2009Q3

REPORT INFORMATION
  Report Type: 
  Country: None (occurrence: None)
  Receive Date: 20090924
  Receipt Date: 20090304
  Transmission Date: 20100115
  Serious: Yes (Disabling)
  Sender: FDA-Public Use
  Company Number: WAES 0503USA05205

PATIENT
  Age: 69 Year
  Sex: Female

DRUGS (3)
  1. VYTORIN [Suspect]
     Indication: HYPERCHOLESTEROLAEMIA
     Dosage: 10-20 MG/DAILY/PO
     Route: 048
     Dates: start: 20041119, end: 20050114
  2. SYNTHROID [Concomitant]
  3. ASPIRIN [Concomitant]

REACTIONS (2)
  - ASTHENIA [None]
  - MYALGIA [None]
